FAERS Safety Report 7530638-4 (Version None)
Quarter: 2011Q2

REPORT INFORMATION
  Report Type: 
  Country: None (occurrence: None)
  Receive Date: 20110607
  Receipt Date: 20110531
  Transmission Date: 20111010
  Serious: Yes (Other)
  Sender: FDA-Public Use
  Company Number: US-US-EMD SERONO, INC.-7054011

PATIENT
  Sex: Male

DRUGS (9)
  1. TRAMADOL HCL [Concomitant]
     Dates: end: 20110101
  2. KETOROLAC TROMETHAMINE [Concomitant]
     Route: 048
     Dates: end: 20110101
  3. HYDROCODONE BITARTRATE [Concomitant]
     Dates: end: 20110101
  4. CIPROFLOXACIN [Concomitant]
     Dates: end: 20110101
  5. ONE A DAY VITAMIN FOR MEN [Concomitant]
     Route: 048
     Dates: end: 20110411
  6. VITAMIN D [Concomitant]
     Route: 048
     Dates: end: 20110411
  7. REBIF [Suspect]
     Indication: MULTIPLE SCLEROSIS
     Route: 058
     Dates: start: 20090116, end: 20110411
  8. NAPROXEN (ALEVE) [Concomitant]
     Indication: PREMEDICATION
     Route: 048
     Dates: end: 20110411
  9. PANTOPRAZOLE [Concomitant]
     Dates: end: 20110101

REACTIONS (6)
  - IDIOPATHIC THROMBOCYTOPENIC PURPURA [None]
  - BENIGN NEOPLASM OF THYROID GLAND [None]
  - URINARY TRACT INFECTION [None]
  - PROTEINURIA [None]
  - HEADACHE [None]
  - MULTIPLE SCLEROSIS RELAPSE [None]
